FAERS Safety Report 6866517-5 (Version None)
Quarter: 2010Q2

REPORT INFORMATION
  Report Type: 
  Country: None (occurrence: None)
  Receive Date: 20100603
  Receipt Date: 20100308
  Transmission Date: 20101027
  Serious: Yes (Other)
  Sender: FDA-Public Use
  Company Number: 225535USA

PATIENT
  Sex: Female

DRUGS (1)
  1. PRAMIPEXOLE DIHYDROCHLORIDE [Suspect]
     Dosage: ORAL
     Route: 048

REACTIONS (3)
  - ABASIA [None]
  - DRUG INEFFECTIVE [None]
  - DYSKINESIA [None]
